FAERS Safety Report 19634017 (Version 1)
Quarter: 2021Q3

REPORT INFORMATION
  Report Type: Spontaneous
  Country: US (occurrence: US)
  Receive Date: 20210730
  Receipt Date: 20210730
  Transmission Date: 20211014
  Serious: No
  Sender: FDA-Public Use
  Company Number: US-TEVA-2020-US-1815916

PATIENT

DRUGS (2)
  1. AUSTEDO [Suspect]
     Active Substance: DEUTETRABENAZINE
     Dosage: 48 MILLIGRAM DAILY;
     Route: 065
  2. AUSTEDO [Suspect]
     Active Substance: DEUTETRABENAZINE
     Dosage: 24 MILLIGRAM DAILY;
     Route: 065

REACTIONS (7)
  - Drug ineffective [Unknown]
  - Loss of personal independence in daily activities [Unknown]
  - Dyskinesia [Not Recovered/Not Resolved]
  - Dyskinesia [Recovering/Resolving]
  - Frustration tolerance decreased [Unknown]
  - Tremor [Recovering/Resolving]
  - Bruxism [Not Recovered/Not Resolved]
